FAERS Safety Report 22637398 (Version 2)
Quarter: 2024Q3

REPORT INFORMATION
  Report Type: Spontaneous
  Country: BE (occurrence: BE)
  Receive Date: 20230626
  Receipt Date: 20240715
  Transmission Date: 20241016
  Serious: No
  Sender: ASTELLAS
  Company Number: BE-ASTELLAS-2023US016995

PATIENT
  Sex: Female

DRUGS (1)
  1. PADCEV [Suspect]
     Active Substance: ENFORTUMAB VEDOTIN-EJFV
     Indication: Bladder cancer
     Dosage: UNK UNK, UNKNOWN FREQ.
     Route: 065

REACTIONS (1)
  - Eosinophilia [Unknown]
